FAERS Safety Report 20867414 (Version 1)
Quarter: 2022Q2

REPORT INFORMATION
  Report Type: Spontaneous
  Country: JP (occurrence: JP)
  Receive Date: 20220524
  Receipt Date: 20220524
  Transmission Date: 20220720
  Serious: Yes (Other)
  Sender: FDA-Public Use
  Company Number: JP-PFIZER INC-202200727361

PATIENT
  Sex: Male

DRUGS (2)
  1. SOLANAX [Suspect]
     Active Substance: ALPRAZOLAM
     Dosage: UNK
  2. SOLANAX [Suspect]
     Active Substance: ALPRAZOLAM
     Dosage: UNK

REACTIONS (1)
  - Seizure [Unknown]
